FAERS Safety Report 6015225-1 (Version None)
Quarter: 2008Q4

REPORT INFORMATION
  Report Type: 
  Country: None (occurrence: None)
  Receive Date: 20081219
  Receipt Date: 20081219
  Transmission Date: 20090506
  Serious: Yes (Other)
  Sender: FDA-Public Use
  Company Number: None

PATIENT
  Age: 28 Year
  Sex: Female
  Weight: 63.05 kg

DRUGS (2)
  1. ZOLPIDEM TARTRATE [Suspect]
     Indication: INSOMNIA
     Dosage: 10 MG AS NEEDED PO
     Route: 048
     Dates: start: 20081209, end: 20081214
  2. SEROQUEL [Concomitant]

REACTIONS (3)
  - PRODUCT QUALITY ISSUE [None]
  - SLEEP TALKING [None]
  - SLEEP-RELATED EATING DISORDER [None]
